FAERS Safety Report 6213254-6 (Version None)
Quarter: 2009Q2

REPORT INFORMATION
  Report Type: 
  Country: None (occurrence: None)
  Receive Date: 20090602
  Receipt Date: 20090602
  Transmission Date: 20091009
  Serious: Yes (Hospitalization)
  Sender: FDA-Public Use
  Company Number: None

PATIENT
  Age: 58 Year
  Sex: Female

DRUGS (1)
  1. NOVANTRONE [Suspect]

REACTIONS (3)
  - CARDIOMYOPATHY [None]
  - PNEUMONIA [None]
  - VIRAL CARDIOMYOPATHY [None]
